FAERS Safety Report 7027319-2 (Version None)
Quarter: 2010Q4

REPORT INFORMATION
  Report Type: 
  Country: None (occurrence: None)
  Receive Date: 20101004
  Receipt Date: 20100917
  Transmission Date: 20110411
  Serious: Yes (Hospitalization, Other)
  Sender: FDA-Public Use
  Company Number: PHEH2010US03846

PATIENT
  Sex: Female

DRUGS (3)
  1. AREDIA [Suspect]
     Indication: METASTASES TO BONE
     Dosage: 90 MG Q4WK
     Dates: start: 19990812, end: 20020227
  2. TAXOTERE [Suspect]
  3. RADIATION THERAPY [Suspect]

REACTIONS (4)
  - CELLULITIS [None]
  - DYSPNOEA [None]
  - LEUKOPENIA [None]
  - LUNG INFILTRATION [None]
